FAERS Safety Report 5326904-3 (Version None)
Quarter: 2007Q2

REPORT INFORMATION
  Report Type: 
  Country: None (occurrence: None)
  Receive Date: 20070511
  Receipt Date: 20070430
  Transmission Date: 20071010
  Serious: Yes (Disabling)
  Sender: FDA-Public Use
  Company Number: GXKR2007IN03905

PATIENT
  Age: 32 Year
  Sex: Male

DRUGS (2)
  1. PREDNISOLONE [Suspect]
     Indication: LUNG DISORDER
     Dosage: SEE IMAGE
  2. AZATHIOPRINE [Concomitant]

REACTIONS (10)
  - BACK PAIN [None]
  - CUSHING'S SYNDROME [None]
  - CUSHINGOID [None]
  - GAIT DISTURBANCE [None]
  - GAIT SPASTIC [None]
  - HYPOAESTHESIA [None]
  - LIPOMATOSIS [None]
  - MUSCULAR WEAKNESS [None]
  - MYELOPATHY [None]
  - POLLAKIURIA [None]
